FAERS Safety Report 17841298 (Version 2)
Quarter: 2020Q3

REPORT INFORMATION
  Report Type: Spontaneous
  Country: US (occurrence: US)
  Receive Date: 20200529
  Receipt Date: 20200701
  Transmission Date: 20201103
  Serious: No
  Sender: FDA-Public Use
  Company Number: US-UNITED THERAPEUTICS-UNT-2020-007911

PATIENT
  Age: 72 Year
  Sex: Female
  Weight: 106.58 kg

DRUGS (3)
  1. REMODULIN [Suspect]
     Active Substance: TREPROSTINIL
     Indication: PULMONARY ARTERIAL HYPERTENSION
     Dosage: UNK, CONTINUING
     Route: 058
     Dates: start: 20120109
  2. OPSUMIT [Concomitant]
     Active Substance: MACITENTAN
     Indication: PRODUCT USED FOR UNKNOWN INDICATION
     Dosage: UNK
     Route: 065
  3. REMODULIN [Suspect]
     Active Substance: TREPROSTINIL
     Dosage: 0.079 ?G/KG, CONTINUING
     Route: 058

REACTIONS (6)
  - Infusion site discharge [Unknown]
  - Infusion site irritation [Unknown]
  - Purulent discharge [Unknown]
  - Device maintenance issue [Unknown]
  - Infusion site swelling [Unknown]
  - Infusion site induration [Unknown]

NARRATIVE: CASE EVENT DATE: 20200525
